FAERS Safety Report 5387696-5 (Version None)
Quarter: 2007Q3

REPORT INFORMATION
  Report Type: 
  Country: None (occurrence: None)
  Receive Date: 20070716
  Receipt Date: 20070705
  Transmission Date: 20080115
  Serious: Yes (Death)
  Sender: FDA-Public Use
  Company Number: US-JNJFOC-20070701790

PATIENT
  Sex: Female
  Weight: 60.78 kg

DRUGS (3)
  1. DURAGESIC-100 [Suspect]
     Indication: CANCER PAIN
     Route: 062
  2. MIGRAINE MEDICATION [Concomitant]
     Indication: MIGRAINE
     Route: 048
  3. CANCER MEDICATION [Concomitant]
     Indication: NEOPLASM MALIGNANT
     Route: 065

REACTIONS (2)
  - HEPATIC NEOPLASM MALIGNANT [None]
  - LUNG NEOPLASM MALIGNANT [None]
